FAERS Safety Report 23778012 (Version 1)
Quarter: 2024Q2

REPORT INFORMATION
  Report Type: Spontaneous
  Country: US (occurrence: US)
  Receive Date: 20240424
  Receipt Date: 20240424
  Transmission Date: 20240716
  Serious: Yes (Death, Other)
  Sender: FDA-Public Use
  Company Number: US-OPELLA-2024OHG013900

PATIENT
  Age: 76 Year
  Sex: Female

DRUGS (1)
  1. TALC [Suspect]
     Active Substance: TALC
     Indication: Product used for unknown indication
     Route: 065

REACTIONS (2)
  - Mesothelioma [Fatal]
  - Exposure to chemical pollution [Unknown]

NARRATIVE: CASE EVENT DATE: 20230606
